FAERS Safety Report 21386006 (Version 1)
Quarter: 2022Q3

REPORT INFORMATION
  Report Type: Spontaneous
  Country: CL (occurrence: None)
  Receive Date: 20220928
  Receipt Date: 20220928
  Transmission Date: 20221027
  Serious: Yes (Other)
  Sender: FDA-Public Use
  Company Number: CL-ROCHE-3186432

PATIENT
  Sex: Female

DRUGS (18)
  1. MABTHERA [Suspect]
     Active Substance: RITUXIMAB
     Indication: Diffuse large B-cell lymphoma
     Dosage: 1ST LINE SYSTEMIC TREATMENT (R-CHOP), COMPLETE REMISSION
     Route: 065
     Dates: start: 20120824, end: 20130201
  2. MABTHERA [Suspect]
     Active Substance: RITUXIMAB
     Dosage: 2ND LINE SYSTEMIC TREATMENT (6 CYCLES OF R-ESHAP), COMPLETE REMISSION
     Route: 065
     Dates: start: 20150608, end: 20151214
  3. MABTHERA [Suspect]
     Active Substance: RITUXIMAB
     Dosage: 4TH LINE SYSTEMIC TREATMENT (3 CYCLE R-DAEPOCH), COMPLETE REMISSION
     Route: 065
     Dates: start: 20190206, end: 20190401
  4. CYCLOPHOSPHAMIDE\DOXORUBICIN\PREDNISONE\VINCRISTINE [Concomitant]
     Active Substance: CYCLOPHOSPHAMIDE\DOXORUBICIN\PREDNISONE\VINCRISTINE
     Indication: Diffuse large B-cell lymphoma
     Dosage: 1ST LINE SYSTEMIC TREATMENT (R-CHOP), COMPLETE REMISSION
     Dates: start: 20120824, end: 20130201
  5. ETOPOSIDE [Concomitant]
     Active Substance: ETOPOSIDE
     Indication: Diffuse large B-cell lymphoma
     Dosage: 2ND LINE SYSTEMIC TREATMENT (6 CYCLES OF R-ESHAP), COMPLETE REMISSION
     Dates: start: 20150608, end: 20151214
  6. ETOPOSIDE [Concomitant]
     Active Substance: ETOPOSIDE
     Dosage: 3RD LINE SYSTEMIC TREATMENT (6 CYCLES OF ICE), COMPLETE REMISSION
     Dates: start: 20170801, end: 20180201
  7. ETOPOSIDE [Concomitant]
     Active Substance: ETOPOSIDE
     Dosage: 4TH LINE SYSTEMIC TREATMENT (3 CYCLE R-DAEPOCH), COMPLETE REMISSION
     Dates: start: 20190206, end: 20190401
  8. METHYLPREDNISOLONE [Concomitant]
     Active Substance: METHYLPREDNISOLONE
     Indication: Diffuse large B-cell lymphoma
     Dosage: 2ND LINE SYSTEMIC TREATMENT (6 CYCLES OF R-ESHAP), COMPLETE REMISSION
     Dates: start: 20150608, end: 20151214
  9. CYTARABINE [Concomitant]
     Active Substance: CYTARABINE
     Indication: Diffuse large B-cell lymphoma
     Dosage: 2ND LINE SYSTEMIC TREATMENT (6 CYCLES OF R-ESHAP), COMPLETE REMISSION
     Dates: start: 20150608, end: 20151214
  10. CISPLATIN [Concomitant]
     Active Substance: CISPLATIN
     Indication: Diffuse large B-cell lymphoma
     Dosage: 2ND LINE SYSTEMIC TREATMENT (6 CYCLES OF R-ESHAP), COMPLETE REMISSION
     Dates: start: 20150608, end: 20151214
  11. IFOSFAMIDE [Concomitant]
     Active Substance: IFOSFAMIDE
     Indication: Diffuse large B-cell lymphoma
     Dosage: 3RD LINE SYSTEMIC TREATMENT (6 CYCLES OF ICE), COMPLETE REMISSION
     Dates: start: 20170801, end: 20180201
  12. CARBOPLATIN [Concomitant]
     Active Substance: CARBOPLATIN
     Indication: Diffuse large B-cell lymphoma
     Dosage: 3RD LINE SYSTEMIC TREATMENT (6 CYCLES OF ICE), COMPLETE REMISSION
     Dates: start: 20170801, end: 20180201
  13. PREDNISONE [Concomitant]
     Active Substance: PREDNISONE
     Indication: Diffuse large B-cell lymphoma
     Dosage: 4TH LINE SYSTEMIC TREATMENT (3 CYCLE R-DAEPOCH), COMPLETE REMISSION
     Dates: start: 20190206, end: 20190401
  14. VINCRISTINE [Concomitant]
     Active Substance: VINCRISTINE
     Indication: Diffuse large B-cell lymphoma
     Dosage: 4TH LINE SYSTEMIC TREATMENT (3 CYCLE R-DAEPOCH), COMPLETE REMISSION
     Dates: start: 20190206, end: 20190401
  15. CYCLOPHOSPHAMIDE [Concomitant]
     Active Substance: CYCLOPHOSPHAMIDE
     Indication: Diffuse large B-cell lymphoma
     Dosage: 4TH LINE SYSTEMIC TREATMENT (3 CYCLE R-DAEPOCH), COMPLETE REMISSION
     Dates: start: 20190206, end: 20190401
  16. DOXORUBICIN [Concomitant]
     Active Substance: DOXORUBICIN
     Indication: Diffuse large B-cell lymphoma
     Dosage: 4TH LINE SYSTEMIC TREATMENT (3 CYCLE R-DAEPOCH), COMPLETE REMISSION
     Dates: start: 20190206, end: 20190401
  17. PEMBROLIZUMAB;VIBOSTOLIMAB [Concomitant]
     Indication: Diffuse large B-cell lymphoma
     Dosage: 6TH LINE SYSTEMIC TREATMENT (3 CYCLES OF PEMBROLIZUMAB+ VIBOSTOLIMAB (CLINICAL TRIAL))
     Dates: start: 20220401, end: 20220601
  18. LENALIDOMIDE [Concomitant]
     Active Substance: LENALIDOMIDE
     Indication: Diffuse large B-cell lymphoma
     Dosage: MOST RECENT THERAPEUTIC REGIMEN (LENALIDOMIDE MONOTHERAPY)
     Dates: start: 20220701, end: 20220801

REACTIONS (1)
  - Neoplasm progression [Unknown]
